FAERS Safety Report 7846473-3 (Version None)
Quarter: 2011Q4

REPORT INFORMATION
  Report Type: 
  Country: None (occurrence: None)
  Receive Date: 20111025
  Receipt Date: 20111025
  Transmission Date: 20120403
  Serious: Yes (Life-Threatening, Hospitalization)
  Sender: FDA-Public Use
  Company Number: None

PATIENT
  Sex: Male
  Weight: 77.11 kg

DRUGS (1)
  1. JANUVIA [Suspect]
     Indication: TYPE 2 DIABETES MELLITUS
     Dosage: 1 100MG TABLET
     Route: 048
     Dates: start: 20071001, end: 20110501

REACTIONS (16)
  - LIVER DISORDER [None]
  - MALIGNANT MELANOMA [None]
  - MALAISE [None]
  - BLOOD PRESSURE DECREASED [None]
  - ABDOMINAL PAIN [None]
  - CHOLECYSTITIS [None]
  - PANCREATITIS [None]
  - HEART RATE INCREASED [None]
  - STAPHYLOCOCCAL INFECTION [None]
  - DEVICE RELATED INFECTION [None]
  - INTESTINAL PERFORATION [None]
  - HEPATIC CYST [None]
  - NAUSEA [None]
  - GALLBLADDER DISORDER [None]
  - BACK PAIN [None]
  - NIGHTMARE [None]
